FAERS Safety Report 23305925 (Version 1)
Quarter: 2023Q4

REPORT INFORMATION
  Report Type: Spontaneous
  Country: US (occurrence: US)
  Receive Date: 20231218
  Receipt Date: 20231218
  Transmission Date: 20240109
  Serious: No
  Sender: FDA-Public Use
  Company Number: US-CIPLA LTD.-2023US02200

PATIENT

DRUGS (8)
  1. BUDESONIDE [Suspect]
     Active Substance: BUDESONIDE
     Indication: Nasal irrigation
     Dosage: 0.5 MILLIGRAM, BID (0.5 MG/2ML) (MORNING AND NIGHT)
     Dates: start: 20230415
  2. XARELTO [Concomitant]
     Active Substance: RIVAROXABAN
     Indication: Pulmonary thrombosis
     Dosage: 10 MILLIGRAM, QD
     Route: 065
     Dates: start: 2021
  3. PREDNISONE [Concomitant]
     Active Substance: PREDNISONE
     Indication: Ear infection
     Dosage: 40 MILLIGRAM, QD
     Route: 065
     Dates: start: 20230415
  4. PREDNISONE [Concomitant]
     Active Substance: PREDNISONE
     Dosage: 30 MILLIGRAM, QD
     Route: 065
  5. PREDNISONE [Concomitant]
     Active Substance: PREDNISONE
     Dosage: 20 MILLIGRAM, QD
     Route: 065
  6. PREDNISONE [Concomitant]
     Active Substance: PREDNISONE
     Dosage: 10 MILLIGRAM, QD
     Route: 065
  7. SULFAMETHOXAZOLE\TRIMETHOPRIM [Concomitant]
     Active Substance: SULFAMETHOXAZOLE\TRIMETHOPRIM
     Indication: Ear infection
     Dosage: UNK, BID, 800 MG / 160 MG / TWICE A DAY
     Route: 065
     Dates: start: 20230415
  8. LORATADINE [Concomitant]
     Active Substance: LORATADINE
     Indication: Product used for unknown indication
     Dosage: 10 MILLIGRAM, BID (10 MG / TWICE A DAY, ONCE IN THE MORNING AND ONCE AT NIGHT)
     Route: 065
     Dates: start: 20230225

REACTIONS (3)
  - Off label use [Unknown]
  - Wrong technique in product usage process [Unknown]
  - Accidental exposure to product [Unknown]

NARRATIVE: CASE EVENT DATE: 20230415
